FAERS Safety Report 10609722 (Version 2)
Quarter: 2014Q4

REPORT INFORMATION
  Report Type: Spontaneous
  Country: CH (occurrence: None)
  Receive Date: 20141124
  Receipt Date: 20141211
  Transmission Date: 20150529
  Serious: Yes (Other)
  Sender: FDA-Public Use
  Company Number: 20140740

PATIENT
  Age: 38 Year
  Sex: Female
  Weight: 51 kg

DRUGS (2)
  1. SERACTIL (DEXIBUPROFEN) [Concomitant]
  2. FERINJECT [Suspect]
     Active Substance: FERRIC CARBOXYMALTOSE
     Indication: IRON DEFICIENCY
     Dosage: 500 MG IN 100 ML OF NAC1 INTRAVENOUS DRIP
     Route: 041
     Dates: start: 20141028, end: 20141028

REACTIONS (6)
  - Hyperhidrosis [None]
  - Cough [None]
  - Feeling hot [None]
  - Infusion related reaction [None]
  - Dyspnoea [None]
  - Flushing [None]

NARRATIVE: CASE EVENT DATE: 20141028
